FAERS Safety Report 19504108 (Version 1)
Quarter: 2021Q3

REPORT INFORMATION
  Report Type: Report from Study
  Country: US (occurrence: US)
  Receive Date: 20210708
  Receipt Date: 20210708
  Transmission Date: 20211014
  Serious: Yes (Other)
  Sender: FDA-Public Use
  Company Number: US-UCBSA-2021017681

PATIENT
  Age: 30 Year
  Sex: Female
  Weight: 54.89 kg

DRUGS (18)
  1. TDAP [Concomitant]
     Active Substance: TETANUS TOXOID, REDUCED DIPHTHERIA TOXOID AND ACELLULAR PERTUSSIS VACCINE ADSORBED, TDAP
     Indication: PRODUCT USED FOR UNKNOWN INDICATION
     Dosage: 1 DOSAGE FORM, ONCE DAILY (QD)
     Route: 030
     Dates: start: 20110701, end: 20110701
  2. TDAP [Concomitant]
     Active Substance: TETANUS TOXOID, REDUCED DIPHTHERIA TOXOID AND ACELLULAR PERTUSSIS VACCINE ADSORBED, TDAP
     Dosage: 1 DOSAGE FORM, ONCE DAILY (QD)
     Route: 030
     Dates: start: 20161212, end: 20161212
  3. TYLENOL [Concomitant]
     Active Substance: ACETAMINOPHEN
     Indication: HEADACHE
     Dosage: 1000 MILLIGRAM, 2X/MONTH
     Route: 048
     Dates: start: 20160521, end: 20170310
  4. ZITHROMAX [Concomitant]
     Active Substance: AZITHROMYCIN DIHYDRATE
     Dosage: 1 DOSAGE FORM, ONCE DAILY (QD)
     Route: 048
     Dates: start: 20170202, end: 20170202
  5. GAS?X [Concomitant]
     Active Substance: DIMETHICONE
     Dosage: 125 MILLIGRAM, PER FOUR AND HALF WEEK
     Route: 048
     Dates: start: 20161112, end: 20170310
  6. TUMS [Concomitant]
     Active Substance: CALCIUM CARBONATE
     Indication: GASTROOESOPHAGEAL REFLUX DISEASE
     Dosage: 2 DOSAGE FORM FOR EVERY 3 WEEKS
     Route: 048
     Dates: start: 20161111, end: 20170310
  7. PRENATAL VITAMINS [MINERALS NOS;VITAMINS NOS] [Concomitant]
     Active Substance: MINERALS\VITAMINS
     Indication: PRODUCT USED FOR UNKNOWN INDICATION
     Dosage: 1 DOSAGE FORM, ONCE DAILY (QD)
     Route: 048
     Dates: start: 20160521, end: 20170310
  8. ZITHROMAX [Concomitant]
     Active Substance: AZITHROMYCIN DIHYDRATE
     Indication: BRONCHITIS
     Dosage: 2 DOSAGE FORM, ONCE DAILY (QD)
     Route: 048
     Dates: start: 20161229, end: 20161229
  9. ZITHROMAX [Concomitant]
     Active Substance: AZITHROMYCIN DIHYDRATE
     Indication: NASOPHARYNGITIS
     Dosage: 1 DOSAGE FORM, ONCE DAILY (QD)
     Route: 048
     Dates: start: 20161230, end: 20161230
  10. ZITHROMAX [Concomitant]
     Active Substance: AZITHROMYCIN DIHYDRATE
     Dosage: 2 DOSAGE FORM, ONCE DAILY (QD)
     Route: 048
     Dates: start: 20170201, end: 20170201
  11. CERTOLIZUMAB PEGOL RA [Suspect]
     Active Substance: CERTOLIZUMAB PEGOL
     Indication: PSORIASIS
     Dosage: 200 MILLIGRAM, 2X/MONTH
     Route: 058
     Dates: start: 20160101, end: 20170226
  12. CERTOLIZUMAB PEGOL RA [Suspect]
     Active Substance: CERTOLIZUMAB PEGOL
     Indication: PSORIATIC ARTHROPATHY
  13. GAS?X [Concomitant]
     Active Substance: DIMETHICONE
     Dosage: 125 MILLIGRAM, WEEKLY (QW)
     Route: 048
     Dates: start: 20161118, end: 20161209
  14. AMOXICILLIN. [Concomitant]
     Active Substance: AMOXICILLIN
     Indication: BRONCHITIS
     Dosage: 2 DOSAGE FORM, 2X/DAY (BID)
     Route: 048
     Dates: start: 20161126, end: 20161202
  15. CLARITIN [Concomitant]
     Active Substance: LORATADINE
     Indication: BRONCHITIS
     Dosage: UNK
     Route: 048
     Dates: start: 20161219, end: 20170112
  16. FLUZONE [INFLUENZA VACCINE] [Concomitant]
     Indication: PRODUCT USED FOR UNKNOWN INDICATION
     Dosage: 1 DOSAGE FORM, ONCE DAILY (QD)
     Route: 030
     Dates: start: 20160916, end: 20160916
  17. GAS?X [Concomitant]
     Active Substance: DIMETHICONE
     Indication: FLATULENCE
     Dosage: 125 MILLIGRAM, PER THREE AND HALF WEEK
     Route: 048
     Dates: start: 20160521, end: 20161117
  18. SUDAFED [XYLOMETAZOLINE HYDROCHLORIDE] [Concomitant]
     Active Substance: XYLOMETAZOLINE HYDROCHLORIDE
     Indication: BRONCHITIS
     Dosage: UNK
     Route: 048
     Dates: start: 20161126, end: 20161210

REACTIONS (5)
  - Maternal exposure before pregnancy [Unknown]
  - Nasopharyngitis [Recovered/Resolved]
  - Bronchitis [Recovered/Resolved]
  - Muscle strain [Recovered/Resolved]
  - Maternal exposure during pregnancy [Unknown]

NARRATIVE: CASE EVENT DATE: 20160605
